FAERS Safety Report 4810292-2 (Version None)
Quarter: 2005Q4

REPORT INFORMATION
  Report Type: 
  Country: None (occurrence: None)
  Receive Date: 20051026
  Receipt Date: 20050811
  Transmission Date: 20060501
  Serious: Yes (Hospitalization)
  Sender: FDA-Public Use
  Company Number: PHNU2005DE02850

PATIENT
  Age: 66 Year
  Sex: Male
  Weight: 76 kg

DRUGS (2)
  1. TRILEPTAL [Suspect]
     Indication: TEMPORAL LOBE EPILEPSY
     Dosage: 150 MG, QD
     Route: 048
     Dates: start: 20050727, end: 20050806
  2. TRILEPTAL [Suspect]
     Dosage: 150 MG, TID
     Route: 048
     Dates: end: 20050806

REACTIONS (15)
  - ABDOMINAL PAIN UPPER [None]
  - ABNORMAL SENSATION IN EYE [None]
  - ALANINE AMINOTRANSFERASE INCREASED [None]
  - BALANCE DISORDER [None]
  - BLOOD CREATINE PHOSPHOKINASE INCREASED [None]
  - DIPLOPIA [None]
  - DIZZINESS [None]
  - EYELID OEDEMA [None]
  - FATIGUE [None]
  - GAIT DISTURBANCE [None]
  - GAMMA-GLUTAMYLTRANSFERASE INCREASED [None]
  - GAZE PALSY [None]
  - HEADACHE [None]
  - HEPATIC ENZYME ABNORMAL [None]
  - NAUSEA [None]
